FAERS Safety Report 20233495 (Version 2)
Quarter: 2024Q2

REPORT INFORMATION
  Report Type: Report from Study
  Country: US (occurrence: US)
  Receive Date: 20211227
  Receipt Date: 20240513
  Transmission Date: 20240715
  Serious: Yes (Other)
  Sender: FDA-Public Use
  Company Number: US-TAKEDA-2021TUS081001

PATIENT
  Age: 54 Year
  Sex: Female

DRUGS (2)
  1. HUMAN IMMUNOGLOBULIN G [Suspect]
     Active Substance: HUMAN IMMUNOGLOBULIN G
     Indication: Selective IgG subclass deficiency
     Dosage: UNK
     Route: 058
  2. HUMAN IMMUNOGLOBULIN G [Suspect]
     Active Substance: HUMAN IMMUNOGLOBULIN G
     Indication: Primary immunodeficiency syndrome

REACTIONS (9)
  - Mast cell activation syndrome [Unknown]
  - Swelling [Unknown]
  - Pain [Unknown]
  - Fatigue [Unknown]
  - Immunisation reaction [Unknown]
  - Ehlers-Danlos syndrome [Unknown]
  - Oral herpes [Unknown]
  - Wound [Unknown]
  - Neuralgia [Unknown]

NARRATIVE: CASE EVENT DATE: 20240508
